FAERS Safety Report 5453608-9 (Version None)
Quarter: 2007Q3

REPORT INFORMATION
  Report Type: 
  Country: None (occurrence: None)
  Receive Date: 20070917
  Receipt Date: 20070907
  Transmission Date: 20080115
  Serious: Yes (Other)
  Sender: FDA-Public Use
  Company Number: US-JNJFOC-20070901848

PATIENT
  Sex: Female
  Weight: 77.11 kg

DRUGS (8)
  1. FENTANYL TRANSDERMAL SYSTEM [Suspect]
     Indication: SPINAL COLUMN STENOSIS
     Route: 062
  2. LASIX [Concomitant]
     Route: 048
  3. KLONOPIN [Concomitant]
     Route: 048
  4. PREVACID [Concomitant]
     Route: 048
  5. SYNTHROID [Concomitant]
     Indication: THYROID DISORDER
     Route: 048
  6. VYTORIN [Concomitant]
     Route: 048
  7. COUMADIN [Concomitant]
     Route: 048
  8. XANAX [Concomitant]
     Route: 048

REACTIONS (3)
  - APPLICATION SITE IRRITATION [None]
  - DIABETES MELLITUS [None]
  - WRONG TECHNIQUE IN DRUG USAGE PROCESS [None]
